FAERS Safety Report 10083896 (Version 4)
Quarter: 2014Q4

REPORT INFORMATION
  Report Type: Spontaneous
  Country: US (occurrence: US)
  Receive Date: 20140417
  Receipt Date: 20141010
  Transmission Date: 20150528
  Serious: Yes (Hospitalization, Other)
  Sender: FDA-Public Use
  Company Number: US-009507513-1111USA03248

PATIENT
  Sex: Female
  Weight: 81.65 kg

DRUGS (8)
  1. FOSAMAX [Suspect]
     Active Substance: ALENDRONATE SODIUM
     Indication: OSTEOPENIA
  2. FOSAMAX [Suspect]
     Active Substance: ALENDRONATE SODIUM
     Indication: OSTEOPENIA
  3. FOSAMAX [Suspect]
     Active Substance: ALENDRONATE SODIUM
     Indication: OSTEOPOROSIS
     Dosage: 70 MG, QW
     Route: 048
     Dates: start: 20080402, end: 20080820
  4. FOSAMAX [Suspect]
     Active Substance: ALENDRONATE SODIUM
     Indication: OSTEOPOROSIS
     Dosage: 70 MG, QW
     Route: 048
     Dates: start: 20081030, end: 20090715
  5. FOSAMAX [Suspect]
     Active Substance: ALENDRONATE SODIUM
     Indication: OSTEOPENIA
  6. FOSAMAX [Suspect]
     Active Substance: ALENDRONATE SODIUM
     Indication: OSTEOPOROSIS
     Dosage: 70 MG, QW
     Route: 048
     Dates: start: 20091101, end: 201001
  7. FOSAMAX [Suspect]
     Active Substance: ALENDRONATE SODIUM
     Indication: OSTEOPENIA
  8. FOSAMAX [Suspect]
     Active Substance: ALENDRONATE SODIUM
     Indication: OSTEOPOROSIS
     Dosage: 70 MG, QW
     Route: 048
     Dates: start: 200301, end: 200803

REACTIONS (35)
  - Fall [Unknown]
  - Rheumatoid arthritis [Unknown]
  - Sciatica [Unknown]
  - Anaemia [Unknown]
  - Cushing^s syndrome [Unknown]
  - Hypercapnia [Unknown]
  - Gastrooesophageal reflux disease [Unknown]
  - Femur fracture [Recovered/Resolved]
  - Hypothyroidism [Unknown]
  - Foot fracture [Unknown]
  - Trigger finger [Unknown]
  - Rotator cuff syndrome [Unknown]
  - Ligament rupture [Unknown]
  - Spinal X-ray abnormal [Unknown]
  - Spinal osteoarthritis [Unknown]
  - Pain in extremity [Unknown]
  - Bursitis [Unknown]
  - Hypercholesterolaemia [Unknown]
  - Hyperlipidaemia [Unknown]
  - Osteoarthritis [Unknown]
  - Cyst [Unknown]
  - Back pain [Unknown]
  - Rash [Unknown]
  - Intramedullary rod insertion [Unknown]
  - Transaminases increased [Unknown]
  - Arthralgia [Unknown]
  - Upper-airway cough syndrome [Unknown]
  - Polyarthritis [Not Recovered/Not Resolved]
  - Oedema [Unknown]
  - Patellofemoral pain syndrome [Unknown]
  - Hypertension [Unknown]
  - Hypokalaemia [Unknown]
  - Sleep apnoea syndrome [Unknown]
  - Tenosynovitis [Unknown]
  - Intervertebral disc degeneration [Unknown]

NARRATIVE: CASE EVENT DATE: 20031125
